FAERS Safety Report 19971461 (Version 6)
Quarter: 2022Q3

REPORT INFORMATION
  Report Type: Spontaneous
  Country: CZ (occurrence: CZ)
  Receive Date: 20211020
  Receipt Date: 20220906
  Transmission Date: 20221027
  Serious: Yes (Hospitalization, Other)
  Sender: FDA-Public Use
  Company Number: CZ-MYLANLABS-2021M1068490

PATIENT
  Age: 20 Year
  Sex: Female

DRUGS (10)
  1. LAMOTRIGINE [Suspect]
     Active Substance: LAMOTRIGINE
     Indication: Seizure
     Dosage: 400 MILLIGRAM, ONCE A DAY (400 MILLIGRAM, QD)
     Route: 065
  2. LAMOTRIGINE [Suspect]
     Active Substance: LAMOTRIGINE
     Indication: Epilepsy
  3. LAMOTRIGINE [Suspect]
     Active Substance: LAMOTRIGINE
     Indication: Partial seizures with secondary generalisation
  4. LEVETIRACETAM [Suspect]
     Active Substance: LEVETIRACETAM
     Indication: Mixed anxiety and depressive disorder
     Dosage: 400 MILLIGRAM, ONCE A DAY
     Route: 065
  5. LEVETIRACETAM [Suspect]
     Active Substance: LEVETIRACETAM
     Indication: Epilepsy
     Dosage: UNK
     Route: 065
  6. LEVETIRACETAM [Suspect]
     Active Substance: LEVETIRACETAM
     Indication: Partial seizures with secondary generalisation
  7. BRIVARACETAM [Suspect]
     Active Substance: BRIVARACETAM
     Indication: Seizure
     Dosage: 50 MILLIGRAM, TWO TIMES A DAY
     Route: 065
  8. VALPROATE [Suspect]
     Active Substance: VALPROIC ACID
     Indication: Epilepsy
     Dosage: 400 MILLIGRAM, ONCE A DAY
     Route: 065
  9. VALPROATE [Suspect]
     Active Substance: VALPROIC ACID
     Indication: Mixed anxiety and depressive disorder
     Dosage: UNK
     Route: 065
  10. VALPROATE [Suspect]
     Active Substance: VALPROIC ACID
     Indication: Partial seizures with secondary generalisation

REACTIONS (8)
  - COVID-19 [Unknown]
  - Increased appetite [Unknown]
  - Mental disorder [Recovered/Resolved]
  - Drug effect less than expected [Unknown]
  - Therapeutic product effect incomplete [Recovered/Resolved]
  - Drug ineffective [Unknown]
  - Psychiatric symptom [Recovered/Resolved]
  - Treatment failure [Unknown]
